FAERS Safety Report 5852649-7 (Version None)
Quarter: 2008Q3

REPORT INFORMATION
  Report Type: 
  Country: None (occurrence: None)
  Receive Date: 20080821
  Receipt Date: 20080811
  Transmission Date: 20090109
  Serious: Yes (Other)
  Sender: FDA-Public Use
  Company Number: B0532762A

PATIENT
  Age: 46 Year
  Sex: Male

DRUGS (3)
  1. KIVEXA [Suspect]
     Indication: HIV INFECTION
     Route: 048
     Dates: start: 20071101
  2. COMBIVIR [Suspect]
     Indication: HIV INFECTION
     Route: 048
     Dates: end: 20071101
  3. VIRAMUNE [Suspect]
     Indication: HIV INFECTION
     Route: 048

REACTIONS (19)
  - ABDOMINAL DISTENSION [None]
  - ABDOMINAL PAIN [None]
  - ANAEMIA [None]
  - ASTHENOPIA [None]
  - BLOOD AMYLASE INCREASED [None]
  - CONSTIPATION [None]
  - DEPRESSED MOOD [None]
  - DISTURBANCE IN ATTENTION [None]
  - FAECALOMA [None]
  - FATIGUE [None]
  - HYPOAESTHESIA [None]
  - IRON DEFICIENCY [None]
  - LIPODYSTROPHY ACQUIRED [None]
  - MUSCLE ATROPHY [None]
  - MUSCLE DISORDER [None]
  - MUSCULAR WEAKNESS [None]
  - OSTEOARTHRITIS [None]
  - PANCREATITIS [None]
  - PARAESTHESIA [None]
